FAERS Safety Report 18724390 (Version 1)
Quarter: 2021Q1

REPORT INFORMATION
  Report Type: Spontaneous
  Country: US (occurrence: US)
  Receive Date: 20210109
  Receipt Date: 20210109
  Transmission Date: 20210419
  Serious: Yes (Hospitalization)
  Sender: FDA-Public Use
  Company Number: None

PATIENT
  Sex: Female
  Weight: 81.2 kg

DRUGS (2)
  1. VINCRISTINE SULFATE. [Suspect]
     Active Substance: VINCRISTINE SULFATE
     Dates: end: 20200720
  2. METHOTREXATE. [Suspect]
     Active Substance: METHOTREXATE
     Dates: end: 20200720

REACTIONS (5)
  - Blood bilirubin increased [None]
  - Stomatitis [None]
  - Transaminases increased [None]
  - Disseminated intravascular coagulation [None]
  - Hyperbilirubinaemia [None]

NARRATIVE: CASE EVENT DATE: 20200810
